FAERS Safety Report 7643207-2 (Version None)
Quarter: 2011Q3

REPORT INFORMATION
  Report Type: 
  Country: None (occurrence: None)
  Receive Date: 20110729
  Receipt Date: 20110718
  Transmission Date: 20111222
  Serious: No
  Sender: FDA-Public Use
  Company Number: US-BIOGENIDEC-2010BI042705

PATIENT
  Age: 62 Year
  Sex: Female

DRUGS (1)
  1. TYSABRI [Suspect]
     Indication: MULTIPLE SCLEROSIS
     Route: 042
     Dates: start: 20101119

REACTIONS (5)
  - SPEECH DISORDER [None]
  - PRURITUS GENERALISED [None]
  - OEDEMA PERIPHERAL [None]
  - BALANCE DISORDER [None]
  - JOINT SWELLING [None]
